FAERS Safety Report 7446862-5 (Version None)
Quarter: 2011Q2

REPORT INFORMATION
  Report Type: 
  Country: None (occurrence: None)
  Receive Date: 20110429
  Receipt Date: 20110422
  Transmission Date: 20111010
  Serious: Yes (Death)
  Sender: FDA-Public Use
  Company Number: TR-PFIZER INC-2011087625

PATIENT
  Age: 45 Year
  Sex: Male

DRUGS (3)
  1. SULPERAZON [Suspect]
     Dosage: UNK
     Route: 042
     Dates: start: 20090910, end: 20090914
  2. TEICOPLANIN [Suspect]
     Dosage: 400 UNK, 1X/DAY
     Route: 042
     Dates: start: 20090913, end: 20091005
  3. CASPOFUNGIN [Suspect]
     Dosage: 50 UNK, 1X/DAY
     Route: 042
     Dates: start: 20090911, end: 20091005

REACTIONS (1)
  - DEATH [None]
